FAERS Safety Report 7286344-7 (Version None)
Quarter: 2011Q1

REPORT INFORMATION
  Report Type: 
  Country: None (occurrence: None)
  Receive Date: 20110210
  Receipt Date: 20110203
  Transmission Date: 20110831
  Serious: Yes (Death, Hospitalization, Other)
  Sender: FDA-Public Use
  Company Number: US-BAXTER-2010BH002593

PATIENT
  Age: 80 Year
  Sex: Female

DRUGS (5)
  1. DIANEAL [Concomitant]
     Indication: PERITONEAL DIALYSIS
     Route: 033
  2. DIANEAL [Suspect]
     Indication: PERITONEAL DIALYSIS
     Route: 033
     Dates: start: 20070101
  3. RENAGEL [Concomitant]
     Indication: PRODUCT USED FOR UNKNOWN INDICATION
     Route: 048
  4. CALCITRIOL [Concomitant]
     Indication: PRODUCT USED FOR UNKNOWN INDICATION
     Route: 048
  5. CRESTOR [Concomitant]
     Indication: PRODUCT USED FOR UNKNOWN INDICATION
     Route: 048

REACTIONS (10)
  - DYSPNOEA [None]
  - METASTASES TO LIVER [None]
  - PERITONEAL DIALYSIS COMPLICATION [None]
  - BONE NEOPLASM MALIGNANT [None]
  - CERVIX CARCINOMA [None]
  - GASTROINTESTINAL CARCINOMA [None]
  - LUNG NEOPLASM MALIGNANT [None]
  - NEOPLASM MALIGNANT [None]
  - PERITONEAL EFFLUENT ABNORMAL [None]
  - ABDOMINAL DISTENSION [None]
